FAERS Safety Report 9253450 (Version 1)
Quarter: 2013Q2

REPORT INFORMATION
  Report Type: Report from Study
  Country: PL (occurrence: PL)
  Receive Date: 20130425
  Receipt Date: 20130425
  Transmission Date: 20140414
  Serious: Yes (Hospitalization)
  Sender: FDA-Public Use
  Company Number: PL-BIOGENIDEC-2013BI023532

PATIENT
  Age: 31 Year
  Sex: 0
  Weight: 52 kg

DRUGS (2)
  1. BG00012 [Suspect]
     Indication: MULTIPLE SCLEROSIS
     Dates: start: 20110627
  2. EVRA [Concomitant]
     Indication: CONTRACEPTION
     Dates: start: 2008

REACTIONS (1)
  - Haematuria [Recovered/Resolved]
